FAERS Safety Report 9234117 (Version 1)
Quarter: 2013Q2

REPORT INFORMATION
  Report Type: Spontaneous
  Country: GB (occurrence: GB)
  Receive Date: 20130416
  Receipt Date: 20130416
  Transmission Date: 20140414
  Serious: Yes (Other)
  Sender: FDA-Public Use
  Company Number: GB-ROCHE-1214429

PATIENT
  Age: 66 Year
  Sex: Female
  Weight: 77.4 kg

DRUGS (8)
  1. NAPROXEN [Suspect]
     Indication: PRODUCT USED FOR UNKNOWN INDICATION
     Route: 065
     Dates: start: 20130108
  2. CHLORPHENAMINE [Concomitant]
     Route: 065
     Dates: start: 20130403
  3. FLUCONAZOLE [Concomitant]
     Route: 065
     Dates: start: 20130408
  4. LANSOPRAZOLE [Concomitant]
     Route: 065
     Dates: start: 20130104
  5. PARACETAMOL [Concomitant]
     Route: 065
     Dates: start: 20130403
  6. SODIUM CROMOGLICATE [Concomitant]
     Route: 065
     Dates: start: 20130212, end: 20130214
  7. TRAMADOL [Concomitant]
     Route: 065
     Dates: start: 20130403
  8. TRIMETHOPRIM [Concomitant]
     Route: 065
     Dates: start: 20130408

REACTIONS (2)
  - Hypersensitivity [Recovered/Resolved]
  - Face oedema [Unknown]
